FAERS Safety Report 12508862 (Version 2)
Quarter: 2016Q3

REPORT INFORMATION
  Report Type: Spontaneous
  Country: IT (occurrence: IT)
  Receive Date: 20160629
  Receipt Date: 20160712
  Transmission Date: 20161109
  Serious: Yes (Other)
  Sender: FDA-Public Use
  Company Number: IT-PFIZER INC-2016310938

PATIENT
  Age: 74 Year
  Sex: Female

DRUGS (7)
  1. CAFERGOT [Concomitant]
     Active Substance: CAFFEINE\ERGOTAMINE TARTRATE
     Dosage: A TABLET, IN THE EVENING
  2. BROMAZEPAM [Concomitant]
     Active Substance: BROMAZEPAM
     Dosage: UNK, AS NEEDED
  3. HALCION [Suspect]
     Active Substance: TRIAZOLAM
     Indication: INSOMNIA
     Dosage: 0.125 MG, DAILY
     Route: 048
  4. TORVAST [Concomitant]
     Active Substance: ATORVASTATIN
     Dosage: 10 MG, DAILY
     Route: 048
  5. NERIXIA [Concomitant]
     Active Substance: NERIDRONIC ACID
     Dosage: ONE VIAL, WEEKLY
  6. RILAMIG [Concomitant]
     Indication: MIGRAINE
     Dosage: 1 DF, AS NEEDED
  7. RIFACOL [Concomitant]
     Active Substance: RIFAXIMIN
     Dosage: MONTHLY CYCLES

REACTIONS (2)
  - Rectal haemorrhage [Recovered/Resolved with Sequelae]
  - Glossodynia [Recovered/Resolved with Sequelae]

NARRATIVE: CASE EVENT DATE: 20160615
